FAERS Safety Report 6058943-1 (Version None)
Quarter: 2009Q1

REPORT INFORMATION
  Report Type: 
  Country: None (occurrence: None)
  Receive Date: 20090130
  Receipt Date: 20090123
  Transmission Date: 20090719
  Serious: Yes (Hospitalization, Congenital Anomaly)
  Sender: FDA-Public Use
  Company Number: A0687249A

PATIENT
  Sex: Male
  Weight: 1 kg

DRUGS (3)
  1. PAXIL [Suspect]
     Indication: DEPRESSION
     Dates: start: 20030101, end: 20050101
  2. PAXIL CR [Suspect]
     Indication: DEPRESSION
     Dates: start: 20030101, end: 20050101
  3. VITAMIN TAB [Concomitant]
     Indication: PREGNANCY

REACTIONS (6)
  - CONGENITAL GENITOURINARY ABNORMALITY [None]
  - DEVELOPMENTAL DELAY [None]
  - DRUG EXPOSURE DURING PREGNANCY [None]
  - DYSPNOEA [None]
  - GENITALIA EXTERNAL AMBIGUOUS [None]
  - HYPOSPADIAS [None]
